FAERS Safety Report 25683275 (Version 3)
Quarter: 2025Q3

REPORT INFORMATION
  Report Type: Spontaneous
  Country: CA (occurrence: CA)
  Receive Date: 20250814
  Receipt Date: 20250926
  Transmission Date: 20251020
  Serious: Yes (Other)
  Sender: NOVARTIS
  Company Number: CA-002147023-NVSC2025CA127238

PATIENT
  Sex: Female

DRUGS (15)
  1. CYCLOSPORINE [Suspect]
     Active Substance: CYCLOSPORINE
     Indication: Antiallergic therapy
     Dosage: 100 MG, BID (200 MG QD)
     Route: 048
  2. CYCLOSPORINE [Suspect]
     Active Substance: CYCLOSPORINE
     Indication: Chronic spontaneous urticaria
     Dosage: 50 MG, BID (100 MG QD)
     Route: 048
  3. MONTELUKAST [Suspect]
     Active Substance: MONTELUKAST
     Indication: Chronic spontaneous urticaria
     Route: 065
  4. BILASTINE [Suspect]
     Active Substance: BILASTINE
     Indication: Chronic spontaneous urticaria
     Route: 065
  5. CETIRIZINE [Suspect]
     Active Substance: CETIRIZINE HYDROCHLORIDE
     Indication: Chronic spontaneous urticaria
     Route: 065
  6. FAMOTIDINE [Suspect]
     Active Substance: FAMOTIDINE
     Indication: Chronic spontaneous urticaria
     Route: 065
  7. COLCHICINE [Suspect]
     Active Substance: COLCHICINE
     Indication: Chronic spontaneous urticaria
     Route: 065
  8. RUPATADINE [Suspect]
     Active Substance: RUPATADINE
     Indication: Chronic spontaneous urticaria
     Route: 065
  9. BILASTINE [Concomitant]
     Active Substance: BILASTINE
     Indication: Antiallergic therapy
     Route: 065
  10. CETIRIZINE [Concomitant]
     Active Substance: CETIRIZINE HYDROCHLORIDE
     Indication: Antiallergic therapy
     Route: 065
  11. FAMOTIDINE [Concomitant]
     Active Substance: FAMOTIDINE
     Indication: Antiallergic therapy
     Route: 065
  12. MONTELUKAST [Concomitant]
     Active Substance: MONTELUKAST
     Indication: Antiallergic therapy
     Route: 065
  13. RUPATADINE [Concomitant]
     Active Substance: RUPATADINE
     Indication: Antiallergic therapy
     Route: 065
  14. OMALIZUMAB [Concomitant]
     Active Substance: OMALIZUMAB
     Indication: Chronic spontaneous urticaria
     Route: 065
  15. OMALIZUMAB [Concomitant]
     Active Substance: OMALIZUMAB
     Route: 058

REACTIONS (2)
  - Renal impairment [Unknown]
  - Treatment failure [Unknown]
